FAERS Safety Report 23652660 (Version 5)
Quarter: 2024Q1

REPORT INFORMATION
  Report Type: Spontaneous
  Country: GR (occurrence: GR)
  Receive Date: 20240320
  Receipt Date: 20240326
  Transmission Date: 20240409
  Serious: No
  Sender: FDA-Public Use
  Company Number: GR-PFIZER INC-PV202400026546

PATIENT
  Age: 11 Year
  Sex: Female
  Weight: 34 kg

DRUGS (1)
  1. GENOTROPIN [Suspect]
     Active Substance: SOMATROPIN
     Indication: Hypopituitarism
     Dosage: 1.2 MG X 6 DAYS WITH ONE DAY OFF PER WEEK
     Route: 058
     Dates: start: 202310

REACTIONS (1)
  - Needle issue [Unknown]
